FAERS Safety Report 10242683 (Version 3)
Quarter: 2015Q1

REPORT INFORMATION
  Report Type: Spontaneous
  Country: IN (occurrence: IN)
  Receive Date: 20140617
  Receipt Date: 20150104
  Transmission Date: 20150720
  Serious: Yes (Death, Hospitalization, Other)
  Sender: FDA-Public Use
  Company Number: IN-009507513-1406IND007888

PATIENT
  Age: 59 Year
  Sex: Male

DRUGS (1)
  1. JANUMET [Suspect]
     Active Substance: METFORMIN HYDROCHLORIDE\SITAGLIPTIN PHOSPHATE
     Indication: DIABETES MELLITUS
     Dosage: 1X /DAY
     Route: 048

REACTIONS (3)
  - Cerebrovascular accident [Fatal]
  - Inappropriate schedule of drug administration [Unknown]
  - Hydrothorax [Not Recovered/Not Resolved]

NARRATIVE: CASE EVENT DATE: 2014
